FAERS Safety Report 5964530-3 (Version None)
Quarter: 2008Q4

REPORT INFORMATION
  Report Type: 
  Country: None (occurrence: None)
  Receive Date: 20081122
  Receipt Date: 20081122
  Transmission Date: 20090506
  Serious: Yes (Other)
  Sender: FDA-Public Use
  Company Number: None

PATIENT
  Age: 22 Year
  Sex: Male
  Weight: 77.1115 kg

DRUGS (2)
  1. CYMBALTA [Suspect]
     Indication: DEPRESSION
     Dosage: 60 MG ONCE A DAY
     Dates: start: 20080613, end: 20080912
  2. CYMBALTA [Suspect]
     Indication: OBSESSIVE-COMPULSIVE DISORDER
     Dosage: 60 MG ONCE A DAY
     Dates: start: 20080613, end: 20080912

REACTIONS (4)
  - DELUSION [None]
  - MANIA [None]
  - PARANOIA [None]
  - THINKING ABNORMAL [None]
